FAERS Safety Report 7287900-2 (Version None)
Quarter: 2011Q1

REPORT INFORMATION
  Report Type: 
  Country: None (occurrence: None)
  Receive Date: 20110211
  Receipt Date: 20110207
  Transmission Date: 20110831
  Serious: No
  Sender: FDA-Public Use
  Company Number: US-PFIZER INC-2011027894

PATIENT
  Age: 95 Year
  Sex: Male

DRUGS (2)
  1. EFFEXOR XR [Suspect]
     Indication: ANXIETY
  2. EFFEXOR XR [Suspect]
     Indication: DEPRESSION

REACTIONS (1)
  - HEARING IMPAIRED [None]
